FAERS Safety Report 25116983 (Version 1)
Quarter: 2025Q1

REPORT INFORMATION
  Report Type: Report from Study
  Country: US (occurrence: US)
  Receive Date: 20250325
  Receipt Date: 20250325
  Transmission Date: 20250408
  Serious: Yes (Hospitalization, Other)
  Sender: ABBVIE
  Company Number: US-ABBVIE-6117330

PATIENT
  Age: 61 Year
  Sex: Male
  Weight: 132 kg

DRUGS (12)
  1. HUMIRA [Suspect]
     Active Substance: ADALIMUMAB
     Indication: Ankylosing spondylitis
     Dosage: UNKNOWN DOSAGE
     Route: 058
     Dates: start: 2005, end: 2023
  2. HUMIRA [Suspect]
     Active Substance: ADALIMUMAB
     Indication: Rheumatoid arthritis
     Dosage: UNKNOWN DOSAGE
     Route: 058
     Dates: start: 2023, end: 202408
  3. SIMPONI [Suspect]
     Active Substance: GOLIMUMAB
     Indication: Ankylosing spondylitis
     Route: 065
     Dates: start: 202403, end: 202404
  4. SIMPONI [Suspect]
     Active Substance: GOLIMUMAB
     Indication: Ankylosing spondylitis
     Route: 065
  5. ATENOLOL [Concomitant]
     Active Substance: ATENOLOL
     Indication: Blood pressure measurement
  6. PREDNISONE [Concomitant]
     Active Substance: PREDNISONE
     Indication: Arthritis
  7. APIXABAN [Concomitant]
     Active Substance: APIXABAN
     Indication: Anticoagulant therapy
  8. MELOXICAM [Concomitant]
     Active Substance: MELOXICAM
     Indication: Blood pressure measurement
  9. COSENTYX [Concomitant]
     Active Substance: SECUKINUMAB
     Indication: Arthritis
  10. GABAPENTIN [Concomitant]
     Active Substance: GABAPENTIN
     Indication: Pain
  11. NABUMETONE [Concomitant]
     Active Substance: NABUMETONE
     Indication: Pain
  12. ALLOPURINOL [Concomitant]
     Active Substance: ALLOPURINOL
     Indication: Product used for unknown indication

REACTIONS (14)
  - Cardiac disorder [Recovering/Resolving]
  - Drug ineffective [Not Recovered/Not Resolved]
  - Lung disorder [Recovered/Resolved]
  - Drug ineffective [Unknown]
  - Fluid retention [Recovering/Resolving]
  - Insomnia [Not Recovered/Not Resolved]
  - Dyspnoea [Recovering/Resolving]
  - Lethargy [Unknown]
  - Heart rate irregular [Recovered/Resolved]
  - Arthritis [Recovered/Resolved]
  - Asthenia [Unknown]
  - Osteoarthritis [Unknown]
  - Pneumonia [Not Recovered/Not Resolved]
  - Pulmonary oedema [Unknown]

NARRATIVE: CASE EVENT DATE: 20230101
